FAERS Safety Report 14855845 (Version 5)
Quarter: 2018Q4

REPORT INFORMATION
  Report Type: Spontaneous
  Country: DE (occurrence: DE)
  Receive Date: 20180507
  Receipt Date: 20181219
  Transmission Date: 20190204
  Serious: Yes (Death, Life-Threatening, Hospitalization)
  Sender: FDA-Public Use
  Company Number: DE-ANIPHARMA-2018-DE-000071

PATIENT
  Sex: Female
  Weight: 63 kg

DRUGS (4)
  1. LETROZOLE. [Suspect]
     Active Substance: LETROZOLE
     Dosage: 2.5MG
     Route: 065
     Dates: start: 20171122, end: 20180404
  2. ANASTROZOLE. [Suspect]
     Active Substance: ANASTROZOLE
     Indication: PRODUCT USED FOR UNKNOWN INDICATION
     Dosage: 2.5MG
     Route: 048
     Dates: start: 201711, end: 20180411
  3. KISQALI [Suspect]
     Active Substance: RIBOCICLIB
     Dosage: 600MG
     Route: 048
     Dates: start: 20171122, end: 20180404
  4. IMERON [Concomitant]
     Active Substance: IOMEPROL
     Dosage: 70ML
     Route: 065
     Dates: start: 20180411

REACTIONS (19)
  - Anaemia [Unknown]
  - Gastric dilatation [Unknown]
  - Cardiac failure [Unknown]
  - Haemoglobin decreased [Fatal]
  - Dyspnoea exertional [Unknown]
  - Hepatic enzyme increased [Fatal]
  - Ascites [Unknown]
  - Blood pressure decreased [Unknown]
  - General physical health deterioration [Unknown]
  - Back pain [Unknown]
  - Rales [Unknown]
  - Pallor [Unknown]
  - Pleural effusion [Unknown]
  - Venous occlusion [Fatal]
  - Death [Fatal]
  - Multiple organ dysfunction syndrome [Fatal]
  - Circulatory collapse [Unknown]
  - Fall [Unknown]
  - Urinary tract infection bacterial [Unknown]

NARRATIVE: CASE EVENT DATE: 20180411
